FAERS Safety Report 6731873-5 (Version None)
Quarter: 2010Q2

REPORT INFORMATION
  Report Type: 
  Country: None (occurrence: None)
  Receive Date: 20100519
  Receipt Date: 20100517
  Transmission Date: 20101027
  Serious: Yes (Hospitalization, Other)
  Sender: FDA-Public Use
  Company Number: US-ROXANE LABORATORIES, INC.-2010-RO-00579RO

PATIENT
  Age: 21 Year
  Sex: Female

DRUGS (10)
  1. BUPRENORPHINE HYDROCHLORIDE [Suspect]
     Indication: DRUG DEPENDENCE
     Route: 060
  2. BUPRENORPHINE HYDROCHLORIDE [Suspect]
     Dosage: 4 MG
     Route: 060
  3. BUPRENORPHINE HYDROCHLORIDE [Suspect]
     Dosage: 6 MG
     Route: 060
  4. BUPRENORPHINE HYDROCHLORIDE [Suspect]
  5. METHADONE [Suspect]
  6. CETIRIZINE HCL [Suspect]
     Indication: ADVERSE REACTION
  7. CETIRIZINE HCL [Suspect]
     Dosage: 10 MG
     Route: 048
  8. HEROIN [Suspect]
     Indication: DRUG ABUSE
  9. OXYCODONE [Suspect]
  10. HYDROCODONE [Suspect]

REACTIONS (3)
  - DRUG DEPENDENCE [None]
  - HYPERSENSITIVITY [None]
  - MECHANICAL URTICARIA [None]
